FAERS Safety Report 26074785 (Version 1)
Quarter: 2025Q4

REPORT INFORMATION
  Report Type: Spontaneous
  Country: BR (occurrence: BR)
  Receive Date: 20251121
  Receipt Date: 20251121
  Transmission Date: 20260117
  Serious: Yes (Other)
  Sender: ORGANON
  Company Number: BR-ORGANON-O2511BRA001076

PATIENT
  Age: 30 Year
  Sex: Female
  Weight: 60 kg

DRUGS (2)
  1. ETONOGESTREL [Suspect]
     Active Substance: ETONOGESTREL
     Indication: Contraception
     Dosage: 1 IMPLANT
  2. ETONOGESTREL [Suspect]
     Active Substance: ETONOGESTREL
     Indication: Dysmenorrhoea

REACTIONS (7)
  - Vaginal haemorrhage [Recovered/Resolved]
  - Internal haemorrhage [Unknown]
  - Dysmenorrhoea [Unknown]
  - Therapeutic product effect incomplete [Unknown]
  - Product use in unapproved indication [Unknown]
  - Product prescribing issue [Unknown]
  - Drug ineffective for unapproved indication [Unknown]

NARRATIVE: CASE EVENT DATE: 20231114
